FAERS Safety Report 7207622-3 (Version None)
Quarter: 2011Q1

REPORT INFORMATION
  Report Type: 
  Country: None (occurrence: None)
  Receive Date: 20110103
  Receipt Date: 20101229
  Transmission Date: 20110831
  Serious: Yes (Other)
  Sender: FDA-Public Use
  Company Number: NL-PFIZER INC-2010172261

PATIENT
  Age: 26 Year
  Sex: Male

DRUGS (1)
  1. SALAZOPYRIN [Suspect]
     Indication: MUSCULOSKELETAL PAIN
     Dosage: 500 MG, UNK
     Dates: start: 20020219

REACTIONS (2)
  - VISUAL ACUITY REDUCED [None]
  - PUPILLARY REFLEX IMPAIRED [None]
